FAERS Safety Report 14038150 (Version 4)
Quarter: 2018Q3

REPORT INFORMATION
  Report Type: Report from Study
  Country: US (occurrence: US)
  Receive Date: 20171004
  Receipt Date: 20180719
  Transmission Date: 20181010
  Serious: Yes (Other)
  Sender: FDA-Public Use
  Company Number: US-UCBSA-2017039657

PATIENT
  Sex: Female
  Weight: 68.4 kg

DRUGS (7)
  1. SINGULAIR [Concomitant]
     Active Substance: MONTELUKAST SODIUM
     Indication: ASTHMA
     Dosage: 10 MG, AT EVERY BED TIME (QHS)
  2. SYNTHROID [Concomitant]
     Active Substance: LEVOTHYROXINE SODIUM
     Indication: HYPOTHYROIDISM
     Dosage: 100 ?G, ONCE DAILY (QD)
     Route: 048
     Dates: start: 1996
  3. ALVESCO [Concomitant]
     Active Substance: CICLESONIDE
     Indication: ASTHMA PROPHYLAXIS
     Dosage: 160 MCG, 1 PUFF TWICE A DAY, INHALATION
  4. LEVETIRACETAM. [Suspect]
     Active Substance: LEVETIRACETAM
     Indication: EPILEPSY
  5. LEVETIRACETAM. [Suspect]
     Active Substance: LEVETIRACETAM
     Indication: SEIZURE
     Dosage: 3X/DAY (TID), 1250 MG (2 ? TABS OF 500 MG THREE TIMES A DAY)
     Route: 048
  6. DULERA [Concomitant]
     Active Substance: FORMOTEROL FUMARATE DIHYDRATE\MOMETASONE FUROATE
     Indication: ASTHMA PROPHYLAXIS
     Dosage: 200 MCG/5, 2 PUFFS TWICE A DAY, INHALATION
  7. GABITRIL [Concomitant]
     Active Substance: TIAGABINE HYDROCHLORIDE
     Indication: EPILEPSY
     Dosage: 12 MG, 2X/DAY (BID)
     Route: 048

REACTIONS (3)
  - Pneumonia [Recovered/Resolved]
  - Systemic lupus erythematosus [Recovering/Resolving]
  - Off label use [Unknown]

NARRATIVE: CASE EVENT DATE: 2017
